FAERS Safety Report 6767542-5 (Version None)
Quarter: 2010Q2

REPORT INFORMATION
  Report Type: 
  Country: None (occurrence: None)
  Receive Date: 20100614
  Receipt Date: 20100604
  Transmission Date: 20101027
  Serious: Yes (Hospitalization)
  Sender: FDA-Public Use
  Company Number: PHHY2010US36348

PATIENT
  Sex: Female

DRUGS (12)
  1. TOBI [Suspect]
     Dosage: 300MG/5ML INHALE 150 MF (2.5ML) VIA NEBULIZER TWICE A DAY
  2. CENTRUM [Concomitant]
  3. SINGULAIR [Concomitant]
     Dosage: 10 MG
  4. XANAX [Concomitant]
     Dosage: 0.25 MG
  5. MS CONTIN [Concomitant]
     Dosage: 15 MG CR
  6. SYNTHROID [Concomitant]
     Dosage: 75 MCG
  7. VENTOLIN [Concomitant]
  8. NEXIUM [Concomitant]
     Dosage: 20 MG
  9. SPIRIVA [Concomitant]
  10. FLEXERIL [Concomitant]
     Dosage: 5 MG
  11. XOPENEX [Concomitant]
     Dosage: 0.31 MG
  12. FORMOTEROL FUMARATE [Concomitant]
     Dosage: 20 MCG

REACTIONS (3)
  - BRONCHOSPASM [None]
  - DYSPNOEA [None]
  - RESPIRATORY DISORDER [None]
